FAERS Safety Report 8001246-6 (Version None)
Quarter: 2011Q4

REPORT INFORMATION
  Report Type: 
  Country: None (occurrence: None)
  Receive Date: 20111222
  Receipt Date: 20111212
  Transmission Date: 20120403
  Serious: Yes (Other)
  Sender: FDA-Public Use
  Company Number: FR-ELI_LILLY_AND_COMPANY-FR201112003164

PATIENT
  Age: 72 Year
  Sex: Male

DRUGS (1)
  1. CIALIS [Suspect]
     Dosage: 20 MG, WEEKLY (1/W)
     Route: 048
     Dates: start: 20070101

REACTIONS (1)
  - PROSTATE CANCER [None]
